FAERS Safety Report 6534951-9 (Version None)
Quarter: 2010Q1

REPORT INFORMATION
  Report Type: 
  Country: None (occurrence: None)
  Receive Date: 20100112
  Receipt Date: 20100107
  Transmission Date: 20100710
  Serious: Yes (Other)
  Sender: FDA-Public Use
  Company Number: US-GILEAD-2010-0026361

PATIENT
  Sex: Male

DRUGS (9)
  1. LETAIRIS [Suspect]
     Indication: PULMONARY ARTERIAL HYPERTENSION
     Route: 048
     Dates: start: 20091219, end: 20091225
  2. ASPIRIN [Concomitant]
  3. AMLODIPINE [Concomitant]
  4. FUROSEMIDE [Concomitant]
  5. ATENOLOL [Concomitant]
  6. COZAAR [Concomitant]
  7. SIMVASTATIN [Concomitant]
  8. REVATIO [Concomitant]
  9. TERAZOSIN HCL [Concomitant]

REACTIONS (3)
  - DYSPNOEA [None]
  - OXYGEN CONSUMPTION INCREASED [None]
  - WEIGHT INCREASED [None]
